FAERS Safety Report 7156654-2 (Version None)
Quarter: 2010Q4

REPORT INFORMATION
  Report Type: 
  Country: None (occurrence: None)
  Receive Date: 20101214
  Receipt Date: 20100430
  Transmission Date: 20110411
  Serious: No
  Sender: FDA-Public Use
  Company Number: US-ASTRAZENECA-2004UW12408

PATIENT
  Age: 72 Year
  Sex: Female
  Weight: 70.3 kg

DRUGS (1)
  1. CRESTOR [Suspect]
     Indication: BLOOD CHOLESTEROL INCREASED
     Route: 048
     Dates: start: 20040101, end: 20040201

REACTIONS (4)
  - ARTHRALGIA [None]
  - ASTHENIA [None]
  - MUSCLE DISORDER [None]
  - OSTEOARTHRITIS [None]
